FAERS Safety Report 7791791-0 (Version None)
Quarter: 2011Q4

REPORT INFORMATION
  Report Type: 
  Country: None (occurrence: None)
  Receive Date: 20111003
  Receipt Date: 20110928
  Transmission Date: 20120403
  Serious: Yes (Other)
  Sender: FDA-Public Use
  Company Number: US-PFIZER INC-2011118832

PATIENT
  Sex: Female

DRUGS (1)
  1. CHANTIX [Suspect]
     Indication: SMOKING CESSATION THERAPY
     Dosage: UNK
     Dates: start: 20080101, end: 20080401

REACTIONS (6)
  - DEPRESSION [None]
  - AMNESIA [None]
  - LOSS OF CONSCIOUSNESS [None]
  - AGGRESSION [None]
  - SUICIDAL IDEATION [None]
  - ANXIETY [None]
